FAERS Safety Report 10357298 (Version 1)
Quarter: 2014Q3

REPORT INFORMATION
  Report Type: Spontaneous
  Country: US (occurrence: None)
  Receive Date: 20140730
  Receipt Date: 20140730
  Transmission Date: 20150326
  Serious: Yes (Other)
  Sender: FDA-Public Use
  Company Number: 2014US003453

PATIENT
  Age: 70 Year
  Sex: Female

DRUGS (2)
  1. ICLUSIG [Suspect]
     Active Substance: PONATINIB
     Indication: BLAST CRISIS IN MYELOGENOUS LEUKAEMIA
     Route: 048
  2. ICLUSIG [Suspect]
     Active Substance: PONATINIB
     Route: 048

REACTIONS (3)
  - Packed red blood cell transfusion [None]
  - Skin burning sensation [None]
  - Skin exfoliation [None]

NARRATIVE: CASE EVENT DATE: 20140709
